FAERS Safety Report 12642040 (Version 1)
Quarter: 2016Q3

REPORT INFORMATION
  Report Type: Spontaneous
  Country: FR (occurrence: FR)
  Receive Date: 20160810
  Receipt Date: 20160810
  Transmission Date: 20161109
  Serious: Yes (Hospitalization, Other)
  Sender: FDA-Public Use
  Company Number: FR-009507513-1608FRA002820

PATIENT
  Age: 77 Year
  Sex: Male

DRUGS (17)
  1. IMIPENEM [Suspect]
     Active Substance: IMIPENEM
     Indication: INFECTION
     Dosage: 500 MG, BID
     Route: 042
     Dates: start: 20160613, end: 20160621
  2. ATARAX [Concomitant]
     Active Substance: HYDROXYZINE\HYDROXYZINE HYDROCHLORIDE
     Dosage: 25 MG, BID
  3. CORDARONE [Concomitant]
     Active Substance: AMIODARONE HYDROCHLORIDE
     Dosage: 200 MG, QD
  4. MODAMIDE [Concomitant]
     Active Substance: AMILORIDE HYDROCHLORIDE
     Dosage: 5 MG, BID
  5. ALDACTONE [Concomitant]
     Active Substance: SPIRONOLACTONE
     Dosage: 50 MG, QD
  6. COUMADIN [Concomitant]
     Active Substance: WARFARIN SODIUM
  7. PANTOPRAZOLE [Suspect]
     Active Substance: PANTOPRAZOLE SODIUM
     Indication: PROPHYLAXIS
     Dosage: 20 MG, QD
     Route: 042
     Dates: start: 20160620, end: 20160621
  8. ACETYLCYSTEINE. [Concomitant]
     Active Substance: ACETYLCYSTEINE
     Dosage: 5 MG, UNK
     Route: 042
     Dates: start: 20160620, end: 20160622
  9. VANCOMYCIN [Suspect]
     Active Substance: VANCOMYCIN
     Indication: INFECTION
     Dosage: 2 G, UNK
     Route: 042
     Dates: start: 201605, end: 20160621
  10. METRONIDAZOLE. [Suspect]
     Active Substance: METRONIDAZOLE
     Indication: INFECTION
     Dosage: 1.5 G, UNK
     Route: 042
     Dates: start: 201605, end: 20160621
  11. KARDEGIC [Concomitant]
     Active Substance: ASPIRIN LYSINE
     Dosage: 75 MG, QD
  12. DOLIPRANE [Concomitant]
     Active Substance: ACETAMINOPHEN
     Dosage: UNK, PRN
  13. BUDESONIDE. [Concomitant]
     Active Substance: BUDESONIDE
     Dosage: 0.5 MG, BID
  14. INNOVAIR [Concomitant]
     Active Substance: BECLOMETHASONE DIPROPIONATE\FORMOTEROL
     Dosage: 100/6 (UNITS OT PROVIDED),
  15. XATRAL [Concomitant]
     Active Substance: ALFUZOSIN
     Dosage: 10 MG, QD
  16. FIDAXOMICIN [Suspect]
     Active Substance: FIDAXOMICIN
     Indication: INFECTION
     Dosage: 200 MG, BID
     Route: 048
     Dates: start: 20160609, end: 20160621
  17. NEBIVOLOL. [Concomitant]
     Active Substance: NEBIVOLOL
     Dosage: 5 MG, 1/4 DAY

REACTIONS (1)
  - Acute generalised exanthematous pustulosis [Recovering/Resolving]

NARRATIVE: CASE EVENT DATE: 20160621
